FAERS Safety Report 9018851 (Version 2)
Quarter: 2013Q2

REPORT INFORMATION
  Report Type: Spontaneous
  Country: NO (occurrence: NO)
  Receive Date: 20130118
  Receipt Date: 20130501
  Transmission Date: 20140414
  Serious: Yes (Other)
  Sender: FDA-Public Use
  Company Number: PHHY2013NO002900

PATIENT
  Age: 33 Year
  Sex: Female

DRUGS (5)
  1. TACROLIMUS [Suspect]
     Indication: RENAL TRANSPLANT
     Dosage: 2.5 MG, BID
     Route: 048
     Dates: start: 2009
  2. TACROLIMUS [Interacting]
     Dosage: 2 MG, BID
     Route: 048
     Dates: start: 20120103
  3. DOSTINEX [Interacting]
     Indication: HYPERPROLACTINAEMIA
     Dosage: 0.25 MG, BID
     Route: 048
     Dates: start: 20120914
  4. PREDNISONE [Concomitant]
     Dosage: 5 MG, QD
     Route: 048
  5. ALDOMET [Concomitant]
     Dosage: 500 MG, BID
     Route: 048

REACTIONS (4)
  - Haematuria [Recovered/Resolved]
  - Tenderness [Not Recovered/Not Resolved]
  - Immunosuppressant drug level increased [Recovered/Resolved]
  - Drug interaction [Recovered/Resolved]
